FAERS Safety Report 9882673 (Version 1)
Quarter: 2014Q1

REPORT INFORMATION
  Report Type: Spontaneous
  Country: US (occurrence: US)
  Receive Date: 20140207
  Receipt Date: 20140207
  Transmission Date: 20141002
  Serious: Yes (Congenital Anomaly)
  Sender: FDA-Public Use
  Company Number: US-FRI-1000053339

PATIENT
  Age: 3 Year
  Sex: Male

DRUGS (1)
  1. LEXAPRO [Suspect]
     Route: 064
     Dates: end: 19980923

REACTIONS (4)
  - Spina bifida [Unknown]
  - Arnold-Chiari malformation [Unknown]
  - Talipes [Unknown]
  - Congenital anomaly [Unknown]
